FAERS Safety Report 9193322 (Version 1)
Quarter: 2013Q1

REPORT INFORMATION
  Report Type: Spontaneous
  Country: US (occurrence: None)
  Receive Date: 20130325
  Receipt Date: 20130325
  Transmission Date: 20140127
  Serious: Yes (Life-Threatening, Hospitalization, Disabling, Other)
  Sender: FDA-Public Use
  Company Number: None

PATIENT
  Age: 46 Year
  Sex: Female
  Weight: 49.9 kg

DRUGS (5)
  1. HALDOL [Suspect]
     Indication: ANXIETY
     Dosage: FOUR DOSE EVERY SIX HOURS
     Dates: start: 20110825, end: 20110827
  2. HALDOL [Suspect]
     Indication: AGGRESSION
     Dosage: FOUR DOSE EVERY SIX HOURS
     Dates: start: 20110825, end: 20110827
  3. ATIVAN [Concomitant]
  4. SEROQUEL [Concomitant]
  5. LEXAPRO [Concomitant]

REACTIONS (22)
  - Parkinsonism [None]
  - Tardive dyskinesia [None]
  - Tremor [None]
  - Drooling [None]
  - Convulsion [None]
  - Muscle twitching [None]
  - Amnesia [None]
  - Altered state of consciousness [None]
  - Wheelchair user [None]
  - Abasia [None]
  - Impaired self-care [None]
  - Mobility decreased [None]
  - Deep vein thrombosis [None]
  - Pulmonary thrombosis [None]
  - Pneumonia [None]
  - Blood sodium abnormal [None]
  - Respiratory disorder [None]
  - Speech disorder [None]
  - Weight decreased [None]
  - Personality change [None]
  - Faecal incontinence [None]
  - Urinary incontinence [None]
